FAERS Safety Report 7388815-1 (Version None)
Quarter: 2011Q2

REPORT INFORMATION
  Report Type: 
  Country: None (occurrence: None)
  Receive Date: 20110401
  Receipt Date: 20110110
  Transmission Date: 20111010
  Serious: Yes (Death, Hospitalization, Other)
  Sender: FDA-Public Use
  Company Number: CA-BAYER-2010-005296

PATIENT
  Age: 66 Year
  Sex: Female

DRUGS (1)
  1. SORAFENIB (RAF KINASE INHIBITOR) [Suspect]
     Indication: NEUROENDOCRINE CARCINOMA OF THE SKIN
     Dosage: 400 MG MORNING/ 200 MG EVENING
     Route: 048
     Dates: start: 20101020, end: 20101117

REACTIONS (1)
  - HEPATIC FAILURE [None]
